FAERS Safety Report 8135771-4 (Version None)
Quarter: 2012Q1

REPORT INFORMATION
  Report Type: 
  Country: None (occurrence: None)
  Receive Date: 20120214
  Receipt Date: 20120130
  Transmission Date: 20120608
  Serious: Yes (Other)
  Sender: FDA-Public Use
  Company Number: ES-WATSON-2012-01465

PATIENT
  Age: 67 Year
  Sex: Male

DRUGS (1)
  1. RAPAFLO [Suspect]
     Indication: BENIGN PROSTATIC HYPERPLASIA
     Dosage: UNK
     Route: 048
     Dates: start: 20110818, end: 20111205

REACTIONS (3)
  - RETROGRADE EJACULATION [None]
  - ERECTILE DYSFUNCTION [None]
  - NASAL CONGESTION [None]
